FAERS Safety Report 13421702 (Version 3)
Quarter: 2017Q2

REPORT INFORMATION
  Report Type: Spontaneous
  Country: HU (occurrence: HU)
  Receive Date: 20170410
  Receipt Date: 20170608
  Transmission Date: 20170830
  Serious: Yes (Other)
  Sender: FDA-Public Use
  Company Number: HU-JNJFOC-20170402871

PATIENT
  Age: 64 Year
  Sex: Male

DRUGS (3)
  1. TRAMADOL. [Concomitant]
     Active Substance: TRAMADOL
     Dosage: STOPPED AFTER THREE MONTHS OF TREATMENT.
     Route: 065
     Dates: start: 2014, end: 2014
  2. ZOLEDRONIC ACID [Suspect]
     Active Substance: ZOLEDRONIC ACID
     Indication: METASTASES TO BONE
     Route: 065
     Dates: start: 201501
  3. ZYTIGA [Suspect]
     Active Substance: ABIRATERONE ACETATE
     Indication: PROSTATE CANCER METASTATIC
     Route: 048
     Dates: start: 201401

REACTIONS (3)
  - Prostate cancer metastatic [Unknown]
  - Osteonecrosis [Recovered/Resolved]
  - Arthralgia [Recovered/Resolved]

NARRATIVE: CASE EVENT DATE: 2015
